FAERS Safety Report 21160705 (Version 1)
Quarter: 2022Q3

REPORT INFORMATION
  Report Type: Report from Study
  Country: CO (occurrence: CO)
  Receive Date: 20220802
  Receipt Date: 20220802
  Transmission Date: 20221027
  Serious: Yes (Other)
  Sender: FDA-Public Use
  Company Number: CO-NOVARTISPH-NVSC2022CO172628

PATIENT
  Sex: Female

DRUGS (2)
  1. KISQALI [Suspect]
     Active Substance: RIBOCICLIB
     Indication: Breast cancer
     Dosage: 600 MG, QD ((3 OF 200 MG)
     Route: 048
     Dates: start: 20220719
  2. FULVESTRANT [Suspect]
     Active Substance: FULVESTRANT
     Indication: Product used for unknown indication
     Dosage: UNK
     Route: 065
     Dates: start: 20220719

REACTIONS (5)
  - Bone disorder [Unknown]
  - Limb injury [Unknown]
  - Illness [Unknown]
  - Pain [Unknown]
  - Inappropriate schedule of product administration [Unknown]
